FAERS Safety Report 12794500 (Version 3)
Quarter: 2023Q2

REPORT INFORMATION
  Report Type: Spontaneous
  Country: US (occurrence: US)
  Receive Date: 20160929
  Receipt Date: 20230406
  Transmission Date: 20230722
  Serious: No
  Sender: FDA-Public Use
  Company Number: US-JNJFOC-20160913776

PATIENT
  Age: 1 Decade
  Sex: Male

DRUGS (9)
  1. RISPERDAL [Suspect]
     Active Substance: RISPERIDONE
     Indication: Aggression
     Route: 048
  2. RISPERDAL [Suspect]
     Active Substance: RISPERIDONE
     Indication: Anger
  3. RISPERDAL [Suspect]
     Active Substance: RISPERIDONE
     Indication: Generalised anxiety disorder
  4. RISPERDAL [Suspect]
     Active Substance: RISPERIDONE
     Indication: Disturbance in attention
  5. RISPERDAL [Suspect]
     Active Substance: RISPERIDONE
     Indication: Insomnia
  6. RISPERDAL [Suspect]
     Active Substance: RISPERIDONE
     Indication: Irritability
  7. RISPERDAL [Suspect]
     Active Substance: RISPERIDONE
     Indication: Mood swings
  8. INVEGA [Suspect]
     Active Substance: PALIPERIDONE
     Indication: Product used for unknown indication
     Route: 048
  9. TEGRETOL [Suspect]
     Active Substance: CARBAMAZEPINE
     Indication: Focal dyscognitive seizures
     Route: 065

REACTIONS (3)
  - Obesity [Unknown]
  - Drug ineffective [Unknown]
  - Increased appetite [Unknown]

NARRATIVE: CASE EVENT DATE: 20010101
